FAERS Safety Report 11095402 (Version 1)
Quarter: 2015Q2

REPORT INFORMATION
  Report Type: Spontaneous
  Country: US (occurrence: US)
  Receive Date: 20150506
  Receipt Date: 20150506
  Transmission Date: 20150821
  Serious: Yes (Death, Other)
  Sender: FDA-Public Use
  Company Number: US-GLAXOSMITHKLINE-US2015GSK060339

PATIENT
  Age: 67 Year

DRUGS (1)
  1. ARZERRA [Suspect]
     Active Substance: OFATUMUMAB
     Indication: CHRONIC LYMPHOCYTIC LEUKAEMIA
     Dosage: 2000 MG, WE
     Route: 042
     Dates: start: 20130225, end: 20130331

REACTIONS (1)
  - Chronic lymphocytic leukaemia [Fatal]

NARRATIVE: CASE EVENT DATE: 20130331
